FAERS Safety Report 8005701-4 (Version None)
Quarter: 2011Q4

REPORT INFORMATION
  Report Type: 
  Country: None (occurrence: None)
  Receive Date: 20111223
  Receipt Date: 20111214
  Transmission Date: 20120403
  Serious: Yes (Other)
  Sender: FDA-Public Use
  Company Number: FI-NOVOPROD-329978

PATIENT

DRUGS (2)
  1. HUMALOG [Suspect]
     Indication: GESTATIONAL DIABETES
     Dosage: 8+16+16+16UNK, QD
     Route: 064
     Dates: start: 20060905, end: 20061016
  2. PROTAPHANE [Suspect]
     Indication: GESTATIONAL DIABETES
     Dosage: 2+14
     Route: 064
     Dates: start: 20060905, end: 20061016

REACTIONS (2)
  - SHOULDER DYSTOCIA [None]
  - FOETAL EXPOSURE DURING PREGNANCY [None]
